FAERS Safety Report 8981349 (Version 1)
Quarter: 2012Q4

REPORT INFORMATION
  Report Type: 
  Country: GB (occurrence: GB)
  Receive Date: 20121221
  Receipt Date: 20121221
  Transmission Date: 20130627
  Serious: Yes (Disabling)
  Sender: FDA-Public Use
  Company Number: GB-SANOFI-AVENTIS-2012SA089413

PATIENT
  Age: 76 Year
  Sex: Female
  Weight: 126 kg

DRUGS (4)
  1. MULTAQ [Suspect]
     Indication: ATRIAL FIBRILLATION
     Route: 048
     Dates: start: 20121115, end: 20121126
  2. WARFARIN [Concomitant]
     Indication: PROPHYLAXIS
     Route: 048
     Dates: start: 20121001
  3. SEREVENT [Concomitant]
     Indication: ASTHMA
     Route: 055
  4. FLUTICASONE [Concomitant]
     Indication: ASTHMA
     Route: 055

REACTIONS (1)
  - Oedema peripheral [Recovering/Resolving]
